FAERS Safety Report 8347320-6 (Version None)
Quarter: 2012Q2

REPORT INFORMATION
  Report Type: 
  Country: None (occurrence: None)
  Receive Date: 20120507
  Receipt Date: 20120503
  Transmission Date: 20120825
  Serious: Yes (Hospitalization, Disabling)
  Sender: FDA-Public Use
  Company Number: 2011SP056191

PATIENT
  Age: 26 Year
  Sex: Female
  Weight: 68.0396 kg

DRUGS (4)
  1. CELEXA [Concomitant]
  2. TRAZODONE HCL [Suspect]
     Indication: MOOD SWINGS
     Dates: start: 20080101, end: 20080818
  3. TRAZODONE HCL [Suspect]
     Indication: SUICIDAL IDEATION
     Dates: start: 20080101, end: 20080818
  4. NUVARING [Suspect]
     Indication: CONTRACEPTION
     Dates: start: 20050501, end: 20081215

REACTIONS (28)
  - PAIN [None]
  - OVARIAN CYST [None]
  - DEPRESSION [None]
  - TRICHOMONIASIS [None]
  - PULMONARY THROMBOSIS [None]
  - INJURY [None]
  - SUICIDAL IDEATION [None]
  - BACTERIAL TEST POSITIVE [None]
  - CHEST DISCOMFORT [None]
  - BIPOLAR DISORDER [None]
  - INTERNATIONAL NORMALISED RATIO DECREASED [None]
  - RHINITIS [None]
  - ABSCESS [None]
  - CHEST PAIN [None]
  - SWELLING [None]
  - ARTHROPOD BITE [None]
  - IMPAIRED WORK ABILITY [None]
  - MOOD SWINGS [None]
  - CELLULITIS [None]
  - DEVICE BREAKAGE [None]
  - RESPIRATORY DISORDER [None]
  - HAEMORRHOIDAL HAEMORRHAGE [None]
  - OEDEMA PERIPHERAL [None]
  - NO THERAPEUTIC RESPONSE [None]
  - PULMONARY EMBOLISM [None]
  - ANXIETY [None]
  - SOMNOLENCE [None]
  - STAPHYLOCOCCAL INFECTION [None]
